FAERS Safety Report 5369385-6 (Version None)
Quarter: 2007Q2

REPORT INFORMATION
  Report Type: 
  Country: None (occurrence: None)
  Receive Date: 20070625
  Receipt Date: 20070330
  Transmission Date: 20071010
  Serious: No
  Sender: FDA-Public Use
  Company Number: US-ASTRAZENECA-2007UW06524

PATIENT
  Age: 65 Year
  Sex: Male
  Weight: 108.9 kg

DRUGS (4)
  1. CRESTOR [Suspect]
     Indication: BLOOD CHOLESTEROL INCREASED
     Route: 048
     Dates: start: 20070324
  2. DIAZON [Concomitant]
  3. ASPIRIN [Concomitant]
  4. ARYTHMOL [Concomitant]

REACTIONS (1)
  - ANAL DISCOMFORT [None]
